FAERS Safety Report 24459109 (Version 1)
Quarter: 2024Q4

REPORT INFORMATION
  Report Type: Spontaneous
  Country: US (occurrence: None)
  Receive Date: 20241017
  Receipt Date: 20241017
  Transmission Date: 20250114
  Serious: Yes (Hospitalization)
  Sender: Public
  Company Number: None

PATIENT
  Age: 66 Year
  Sex: Male
  Weight: 127 kg

DRUGS (3)
  1. NITROFURANTOIN [Suspect]
     Active Substance: NITROFURANTOIN
     Indication: Urinary tract infection
     Dosage: FREQUENCY : TWICE A DAY;?
     Route: 048
  2. CEFDINIR [Suspect]
     Active Substance: CEFDINIR
     Dosage: FREQUENCY : TWICE A DAY;?
     Route: 048
     Dates: end: 20240120
  3. WARFARIN [Suspect]
     Active Substance: WARFARIN

REACTIONS (15)
  - Bladder lesion excision [None]
  - Post procedural complication [None]
  - Hyperkalaemia [None]
  - Dysuria [None]
  - Procedural pain [None]
  - Urinary retention [None]
  - Anticoagulation drug level above therapeutic [None]
  - Drug ineffective [None]
  - Rash [None]
  - Purpura [None]
  - Rash [None]
  - Rash pruritic [None]
  - Rash vesicular [None]
  - Oral mucosal eruption [None]
  - Drug hypersensitivity [None]

NARRATIVE: CASE EVENT DATE: 20240120
